FAERS Safety Report 9819876 (Version 1)
Quarter: 2014Q1

REPORT INFORMATION
  Report Type: Spontaneous
  Country: US (occurrence: None)
  Receive Date: 20140114
  Receipt Date: 20140114
  Transmission Date: 20141002
  Serious: Yes (Hospitalization)
  Sender: FDA-Public Use
  Company Number: None

PATIENT
  Age: 55 Year
  Sex: Male
  Weight: 213 kg

DRUGS (2)
  1. MOXIFLOXACIN [Suspect]
     Route: 048
     Dates: start: 20130703, end: 20130706
  2. CEFUROXIME [Suspect]
     Route: 048
     Dates: start: 20130614, end: 20130628

REACTIONS (10)
  - Diarrhoea [None]
  - Haematochezia [None]
  - Abdominal pain [None]
  - Chills [None]
  - Pyrexia [None]
  - Muscle spasms [None]
  - Hypotension [None]
  - Dehydration [None]
  - Hypokalaemia [None]
  - Clostridium difficile infection [None]
